FAERS Safety Report 21484414 (Version 1)
Quarter: 2022Q4

REPORT INFORMATION
  Report Type: Spontaneous
  Country: DK (occurrence: DK)
  Receive Date: 20221020
  Receipt Date: 20221020
  Transmission Date: 20230113
  Serious: Yes (Hospitalization)
  Sender: FDA-Public Use
  Company Number: None

PATIENT
  Age: 3 Decade
  Sex: Male

DRUGS (3)
  1. SERTRALINE [Suspect]
     Active Substance: SERTRALINE HYDROCHLORIDE
     Indication: Depression
     Dosage: DOSAGE: INITIALLY 50MG, 100MG AFTER A FEW DAYS, 150MG 25 OCT 2018,?200MG LATER IN 2018
     Dates: start: 20180309
  2. MIRTAZAPINE [Suspect]
     Active Substance: MIRTAZAPINE
     Indication: Depression
     Dates: start: 20190116, end: 2019
  3. METHYLPHENIDATE [Suspect]
     Active Substance: METHYLPHENIDATE
     Indication: Attention deficit hyperactivity disorder
     Dosage: TABLET (UNCOATED, ORAL)
     Dates: start: 20190208

REACTIONS (4)
  - Vomiting [Unknown]
  - Constipation [Recovered/Resolved]
  - Haematochezia [Unknown]
  - Haematemesis [Recovered/Resolved]

NARRATIVE: CASE EVENT DATE: 20200101
